FAERS Safety Report 15397214 (Version 10)
Quarter: 2022Q1

REPORT INFORMATION
  Report Type: Report from Study
  Country: ES (occurrence: ES)
  Receive Date: 20180918
  Receipt Date: 20220204
  Transmission Date: 20220423
  Serious: Yes (Death, Life-Threatening, Hospitalization, Other)
  Sender: FDA-Public Use
  Company Number: ES-SA-2018SA257071

PATIENT
  Age: 57 Year
  Sex: Female
  Weight: 75 kg

DRUGS (10)
  1. ALEMTUZUMAB [Suspect]
     Active Substance: ALEMTUZUMAB
     Indication: Relapsing-remitting multiple sclerosis
     Dosage: UNK, UNK
     Route: 041
     Dates: start: 20180730, end: 20180801
  2. ALEMTUZUMAB [Suspect]
     Active Substance: ALEMTUZUMAB
     Dosage: UNK UNK, UNK
     Route: 041
     Dates: start: 20170626, end: 20180801
  3. OMEPRAZOLE [Concomitant]
     Active Substance: OMEPRAZOLE
     Dosage: UNK UNK, QD
     Dates: start: 20180730, end: 20180801
  4. METHYLPREDNISOLONE [Concomitant]
     Active Substance: METHYLPREDNISOLONE
     Dosage: 1 G, QD
     Dates: start: 20180730, end: 20180801
  5. METOCLOPRAMIDE [Concomitant]
     Active Substance: METOCLOPRAMIDE
     Dosage: 10NOS, EVERY 8 (NOS)
     Dates: start: 20180730, end: 20180801
  6. UNSPECIFIED INGREDIENT [Concomitant]
     Active Substance: UNSPECIFIED INGREDIENT
     Indication: Thrombosis prophylaxis
     Dosage: UNK
     Dates: start: 2019
  7. NOREPINEPHRINE [Concomitant]
     Active Substance: NOREPINEPHRINE
     Dosage: UNK
     Dates: start: 2019
  8. ACYCLOVIR [Concomitant]
     Active Substance: ACYCLOVIR
     Dosage: 200NOS, EVERY 8 NOS
     Dates: start: 20180730, end: 20180829
  9. ACETAMINOPHEN [Concomitant]
     Active Substance: ACETAMINOPHEN
     Dosage: 1 G,EVERY 8 (NOS)
     Dates: start: 20180730, end: 20180801
  10. DEXCHLORPHENIRAMINE [Concomitant]
     Active Substance: DEXCHLORPHENIRAMINE
     Dosage: 1 DF, EVERY 8 (NOS)
     Dates: start: 20180730, end: 20180801

REACTIONS (8)
  - Transaminases increased [Recovered/Resolved]
  - Urosepsis [Fatal]
  - Pneumonia [Fatal]
  - Cardiac failure [Fatal]
  - Pleural effusion [Fatal]
  - Epilepsy [Recovered/Resolved]
  - Skin reaction [Recovered/Resolved]
  - Gait disturbance [Recovering/Resolving]

NARRATIVE: CASE EVENT DATE: 20180731
